FAERS Safety Report 17095160 (Version 1)
Quarter: 2019Q4

REPORT INFORMATION
  Report Type: Spontaneous
  Country: DE (occurrence: DE)
  Receive Date: 20191130
  Receipt Date: 20191130
  Transmission Date: 20200122
  Serious: Yes (Other)
  Sender: FDA-Public Use
  Company Number: DE-TEVA-2019-DE-1143181

PATIENT
  Age: 1 Day
  Sex: Female
  Weight: 2.5 kg

DRUGS (5)
  1. PANTOPRAZOL [Concomitant]
     Active Substance: PANTOPRAZOLE SODIUM
     Indication: GASTRITIS
     Dosage: 40 MILLIGRAM DAILY; 40 [MG/D ]/ IF REQUIRED
     Route: 064
  2. VOMEX A [Concomitant]
     Active Substance: DIMENHYDRINATE
     Indication: MORNING SICKNESS
     Dosage: 150 MILLIGRAM DAILY; 150 [MG/D ]/ OR ORALLY
     Route: 064
  3. FOSTER [Suspect]
     Active Substance: BECLOMETHASONE\FORMOTEROL
     Indication: ASTHMA
     Dosage: 6 MICROGRAM DAILY; 100 [MCG/D ] / 6 [MCGG/D ]
     Route: 064
     Dates: start: 20171201, end: 20180902
  4. MONTELUKAST [Suspect]
     Active Substance: MONTELUKAST SODIUM
     Indication: ASTHMA
     Dosage: 10 MILLIGRAM DAILY; 10 [MG/D ]
     Route: 064
     Dates: start: 20171201, end: 20180902
  5. SERTRALINE [Suspect]
     Active Substance: SERTRALINE HYDROCHLORIDE
     Indication: BIPOLAR II DISORDER
     Dosage: 100 MILLIGRAM DAILY; 100 [MG/D ]
     Route: 064
     Dates: start: 20171201, end: 20180902

REACTIONS (2)
  - Foetal exposure during pregnancy [Unknown]
  - Small for dates baby [Recovering/Resolving]

NARRATIVE: CASE EVENT DATE: 20180902
